FAERS Safety Report 7917282-1 (Version None)
Quarter: 2011Q4

REPORT INFORMATION
  Report Type: 
  Country: None (occurrence: None)
  Receive Date: 20111114
  Receipt Date: 20111031
  Transmission Date: 20120403
  Serious: Yes (Hospitalization)
  Sender: FDA-Public Use
  Company Number: TCI2011A04568

PATIENT
  Age: 52 Year
  Sex: Male

DRUGS (10)
  1. TOCLASE (PENTOXYVERINE CITRATE) [Concomitant]
  2. DIOVAN [Concomitant]
  3. METFORMIN HYDROCHLORIDE [Concomitant]
  4. LOXONIN (LOXOPROFEN SODIUM) [Concomitant]
  5. AMARYL [Concomitant]
  6. AMLODIPINE BESYLATE [Concomitant]
  7. ACTOS [Suspect]
     Indication: TYPE 2 DIABETES MELLITUS
     Dosage: 15 MG (15 MG, 1 IN 1 D), PER ORAL
     Route: 048
     Dates: start: 20061014, end: 20070727
  8. LIPITOR [Concomitant]
  9. LIPIDIL [Concomitant]
  10. PL (CAFFEINE, SALICYLAMIDE, PARACETAMOL, PROMETHAZINE METHYLENE DISALI [Concomitant]

REACTIONS (2)
  - ASPARTATE AMINOTRANSFERASE INCREASED [None]
  - BLADDER CANCER [None]
